FAERS Safety Report 8781627 (Version 2)
Quarter: 2012Q4

REPORT INFORMATION
  Report Type: 
  Country: US (occurrence: US)
  Receive Date: 20120913
  Receipt Date: 20121015
  Transmission Date: 20130627
  Serious: Yes (Hospitalization)
  Sender: FDA-Public Use
  Company Number: US-VERTEX PHARMACEUTICAL INC.-AE-2012-007850

PATIENT
  Age: 44 Year
  Sex: Male

DRUGS (3)
  1. VX-950 [Suspect]
     Indication: HEPATITIS C
     Dosage: UNK
     Route: 048
     Dates: start: 20120420, end: 20120525
  2. PEGASYS [Concomitant]
     Indication: HEPATITIS C
     Dosage: 135 UNK, UNK
     Dates: start: 20120420, end: 20120525
  3. RIBAVIRIN [Concomitant]
     Indication: HEPATITIS C
     Dosage: 200 mg, UNK
     Dates: start: 20120420, end: 20120525

REACTIONS (3)
  - Fatigue [Unknown]
  - Thrombocytopenia [Unknown]
  - Haemorrhoidal haemorrhage [Unknown]
